FAERS Safety Report 21979466 (Version 1)
Quarter: 2023Q1

REPORT INFORMATION
  Report Type: Report from Study
  Country: FR (occurrence: FR)
  Receive Date: 20230210
  Receipt Date: 20230210
  Transmission Date: 20230418
  Serious: Yes (Death, Other)
  Sender: FDA-Public Use
  Company Number: FR-AMGEN-FRACT2023021217

PATIENT
  Age: 65 Year
  Sex: Female
  Weight: 90 kg

DRUGS (11)
  1. PANITUMUMAB [Suspect]
     Active Substance: PANITUMUMAB
     Indication: Adenocarcinoma of colon
     Dosage: UNK
     Route: 040
  2. BEVACIZUMAB [Suspect]
     Active Substance: BEVACIZUMAB
     Indication: Adenocarcinoma of colon
     Dosage: 500 MILLIGRAM (CYCLE 1)
     Route: 040
     Dates: start: 20221216
  3. OXALIPLATIN [Suspect]
     Active Substance: OXALIPLATIN
     Indication: Adenocarcinoma of colon
     Dosage: 175 MILLIGRAM (CYCLE 1)
     Route: 040
     Dates: start: 20221216
  4. LEUCOVORIN [Suspect]
     Active Substance: LEUCOVORIN
     Indication: Adenocarcinoma of colon
     Dosage: 812 MILLIGRAM (CYCLE 1)
     Route: 040
     Dates: start: 20221216
  5. FLUOROURACIL [Suspect]
     Active Substance: FLUOROURACIL
     Indication: Adenocarcinoma of colon
     Dosage: 5000 MILLIGRAM (CYCLE 1) (IV CONTINUOUS)
     Route: 040
     Dates: start: 20221216
  6. FLUOROURACIL [Suspect]
     Active Substance: FLUOROURACIL
     Dosage: (CYCLE 1) (IV BOLUS)
     Route: 040
     Dates: start: 20221216
  7. IRINOTECAN [Suspect]
     Active Substance: IRINOTECAN
     Indication: Adenocarcinoma of colon
     Dosage: 300 MILLIGRAM (CYCLE 1)
     Route: 040
     Dates: start: 20221216
  8. LOVENOX [Concomitant]
     Active Substance: ENOXAPARIN SODIUM
     Indication: Anticoagulant therapy
     Dosage: 9000 INTERNATIONAL UNIT, BID
     Dates: start: 2022, end: 20221227
  9. METFORMIN [Concomitant]
     Active Substance: METFORMIN HYDROCHLORIDE
     Indication: Diabetes mellitus
     Dosage: 500 MILLIGRAM
     Dates: start: 2015, end: 20221227
  10. FERROUS SULFATE [Concomitant]
     Active Substance: FERROUS SULFATE
     Indication: Anaemia
     Dosage: 50 MILLIGRAM
     Dates: start: 2020, end: 20221227
  11. LANSOPRAZOLE [Concomitant]
     Active Substance: LANSOPRAZOLE
     Indication: Gastrooesophageal reflux disease
     Dosage: 15 MILLIGRAM
     Dates: start: 2020, end: 20221227

REACTIONS (1)
  - Death [Fatal]

NARRATIVE: CASE EVENT DATE: 20221227
